FAERS Safety Report 4946547-0 (Version None)
Quarter: 2006Q1

REPORT INFORMATION
  Report Type: 
  Country: None (occurrence: None)
  Receive Date: 20060317
  Receipt Date: 20060223
  Transmission Date: 20060701
  Serious: Yes (Hospitalization)
  Sender: FDA-Public Use
  Company Number: US-GLAXOSMITHKLINE-A0594946A

PATIENT
  Age: 51 Year
  Sex: Female

DRUGS (7)
  1. ADVAIR DISKUS 100/50 [Suspect]
     Indication: CHRONIC OBSTRUCTIVE PULMONARY DISEASE
     Route: 055
  2. COMBIVENT [Concomitant]
  3. ACTONEL [Concomitant]
  4. SINGULAIR [Concomitant]
  5. FLEXERIL [Concomitant]
  6. EFFEXOR [Concomitant]
  7. TRICOR [Concomitant]

REACTIONS (11)
  - DYSPNOEA [None]
  - EATING DISORDER [None]
  - HYPERTENSION [None]
  - LARYNGITIS [None]
  - LUNG DISORDER [None]
  - LUNG INFECTION [None]
  - OEDEMA PERIPHERAL [None]
  - ORAL INTAKE REDUCED [None]
  - RESPIRATORY TRACT INFECTION FUNGAL [None]
  - THROMBOSIS [None]
  - VOMITING [None]
